FAERS Safety Report 15978171 (Version 3)
Quarter: 2019Q3

REPORT INFORMATION
  Report Type: Spontaneous
  Country: US (occurrence: US)
  Receive Date: 20190218
  Receipt Date: 20190827
  Transmission Date: 20191004
  Serious: Yes (Hospitalization, Other)
  Sender: FDA-Public Use
  Company Number: US-SA-2019SA044498

PATIENT
  Age: 59 Year
  Sex: Female

DRUGS (1)
  1. FABRAZYME [Suspect]
     Active Substance: AGALSIDASE BETA
     Indication: FABRY^S DISEASE
     Dosage: 35 MG, QOW
     Route: 041
     Dates: start: 20171016

REACTIONS (4)
  - Hospitalisation [Unknown]
  - Poor venous access [Unknown]
  - End stage renal disease [Unknown]
  - Malaise [Unknown]

NARRATIVE: CASE EVENT DATE: 2019
